FAERS Safety Report 13543961 (Version 2)
Quarter: 2017Q2

REPORT INFORMATION
  Report Type: Spontaneous
  Country: GB (occurrence: GB)
  Receive Date: 20170515
  Receipt Date: 20170522
  Transmission Date: 20170830
  Serious: Yes (Other)
  Sender: FDA-Public Use
  Company Number: GB-AMGEN-GBRSP2017072439

PATIENT
  Age: 49 Year
  Sex: Male

DRUGS (4)
  1. PACLITAXEL. [Concomitant]
     Active Substance: PACLITAXEL
     Dosage: UNK
  2. PANITUMUMAB [Suspect]
     Active Substance: PANITUMUMAB
     Dosage: UNK
     Route: 065
  3. PANITUMUMAB [Suspect]
     Active Substance: PANITUMUMAB
     Indication: ACINAR CELL CARCINOMA OF PANCREAS
     Dosage: UNK
     Route: 065
     Dates: start: 201008, end: 201203
  4. PACLITAXEL. [Concomitant]
     Active Substance: PACLITAXEL
     Indication: ACINAR CELL CARCINOMA OF PANCREAS
     Dosage: UNK
     Dates: start: 201008, end: 201203

REACTIONS (5)
  - Hepatic lesion [Unknown]
  - Metastases to central nervous system [Unknown]
  - Pancreatic carcinoma metastatic [Unknown]
  - Metastases to retroperitoneum [Unknown]
  - Off label use [Unknown]

NARRATIVE: CASE EVENT DATE: 201008
